FAERS Safety Report 16413517 (Version 1)
Quarter: 2019Q2

REPORT INFORMATION
  Report Type: Spontaneous
  Country: US (occurrence: US)
  Receive Date: 20190611
  Receipt Date: 20190611
  Transmission Date: 20190711
  Serious: Yes (Hospitalization)
  Sender: FDA-Public Use
  Company Number: US-BAYER-2019-106444

PATIENT
  Sex: Female
  Weight: 71.67 kg

DRUGS (1)
  1. CIPRO [Suspect]
     Active Substance: CIPROFLOXACIN HYDROCHLORIDE
     Indication: URINARY TRACT INFECTION
     Dosage: UNK
     Dates: start: 2015

REACTIONS (2)
  - Drug hypersensitivity [None]
  - Hospitalisation [None]

NARRATIVE: CASE EVENT DATE: 2015
